FAERS Safety Report 13565651 (Version 1)
Quarter: 2017Q2

REPORT INFORMATION
  Report Type: Report from Study
  Country: JP (occurrence: JP)
  Receive Date: 20170519
  Receipt Date: 20170519
  Transmission Date: 20170830
  Serious: Yes (Death, Hospitalization)
  Sender: FDA-Public Use
  Company Number: JP-ELI_LILLY_AND_COMPANY-JP201704009131

PATIENT
  Age: 85 Year
  Sex: Male
  Weight: 58 kg

DRUGS (10)
  1. GOREISAN                           /08015901/ [Concomitant]
     Indication: PRODUCT USED FOR UNKNOWN INDICATION
     Dosage: UNK
     Route: 048
     Dates: start: 201610, end: 20170224
  2. PRASUGREL HYDROCHLORIDE [Suspect]
     Active Substance: PRASUGREL HYDROCHLORIDE
     Indication: ANGINA PECTORIS
     Dosage: 3.75 MG, QD
     Route: 048
     Dates: start: 20151105, end: 20160708
  3. SAMSCA [Concomitant]
     Active Substance: TOLVAPTAN
     Indication: PRODUCT USED FOR UNKNOWN INDICATION
     Dosage: UNK
     Route: 048
     Dates: start: 20161123, end: 20170224
  4. GASSAAL                            /00159501/ [Concomitant]
     Indication: PRODUCT USED FOR UNKNOWN INDICATION
     Dosage: UNK
     Route: 048
     Dates: start: 20161122, end: 20170224
  5. VESICARE [Concomitant]
     Active Substance: SOLIFENACIN SUCCINATE
     Indication: PRODUCT USED FOR UNKNOWN INDICATION
     Dosage: UNK
     Route: 048
     Dates: end: 20170224
  6. ASPIRIN                            /00002701/ [Concomitant]
     Active Substance: ASPIRIN
     Indication: PRODUCT USED FOR UNKNOWN INDICATION
     Dosage: 100 MG, QD
     Route: 048
     Dates: start: 20151217, end: 20170222
  7. SENNOSIDE                          /00571901/ [Concomitant]
     Active Substance: SENNOSIDES A AND B
     Indication: PRODUCT USED FOR UNKNOWN INDICATION
     Dosage: UNK
     Route: 048
     Dates: start: 20151217, end: 20160229
  8. MAGMITT [Concomitant]
     Active Substance: MAGNESIUM OXIDE
     Indication: PRODUCT USED FOR UNKNOWN INDICATION
     Dosage: UNK
     Route: 048
     Dates: start: 20160606, end: 20170224
  9. LOTRIGA [Concomitant]
     Active Substance: OMEGA-3-ACID ETHYL ESTERS
     Indication: PRODUCT USED FOR UNKNOWN INDICATION
     Dosage: UNK
     Route: 048
     Dates: start: 20151118, end: 20170224
  10. SENNOSIDE                          /00571901/ [Concomitant]
     Active Substance: SENNOSIDES A AND B
     Dosage: UNK
     Route: 048
     Dates: start: 20161202, end: 20170224

REACTIONS (3)
  - Pneumonia aspiration [Fatal]
  - Cardiac failure congestive [Not Recovered/Not Resolved]
  - Thrombotic cerebral infarction [Not Recovered/Not Resolved]

NARRATIVE: CASE EVENT DATE: 20170214
